FAERS Safety Report 8958496 (Version 1)
Quarter: 2012Q4

REPORT INFORMATION
  Report Type: Spontaneous
  Country: US (occurrence: None)
  Receive Date: 20121205
  Receipt Date: 20121205
  Transmission Date: 20130627
  Serious: Yes (Hospitalization, Other)
  Sender: FDA-Public Use
  Company Number: None

PATIENT

DRUGS (1)
  1. MIRENA IUD [Suspect]

REACTIONS (6)
  - Muscle spasms [None]
  - Back pain [None]
  - Haemorrhage [None]
  - Dizziness [None]
  - Headache [None]
  - Genital pain [None]
